FAERS Safety Report 4531171-4 (Version None)
Quarter: 2004Q4

REPORT INFORMATION
  Report Type: 
  Country: None (occurrence: None)
  Receive Date: 20041216
  Receipt Date: 20041202
  Transmission Date: 20050328
  Serious: No
  Sender: FDA-Public Use
  Company Number: 2004CG02368

PATIENT
  Age: 55 Year
  Sex: Female
  Weight: 73 kg

DRUGS (6)
  1. IRESSA [Suspect]
     Indication: BRONCHIOLOALVEOLAR CARCINOMA
     Dosage: 250 MG QD PO
     Route: 048
     Dates: start: 20041025, end: 20041030
  2. IRESSA [Suspect]
     Indication: BRONCHIOLOALVEOLAR CARCINOMA
     Dosage: 250 MG QD PO
     Route: 048
     Dates: start: 20041108, end: 20041115
  3. CISPLATIN [Concomitant]
  4. GEMZAR [Concomitant]
  5. SERETIDE DISKUS [Concomitant]
  6. BRONCHODUAL [Concomitant]

REACTIONS (5)
  - ASTHMA [None]
  - CONDITION AGGRAVATED [None]
  - ESCHERICHIA URINARY TRACT INFECTION [None]
  - FACE OEDEMA [None]
  - HYPERSENSITIVITY [None]
